FAERS Safety Report 14170451 (Version 1)
Quarter: 2017Q4

REPORT INFORMATION
  Report Type: Spontaneous
  Country: US (occurrence: None)
  Receive Date: 20171108
  Receipt Date: 20171108
  Transmission Date: 20180321
  Serious: Yes (Other)
  Sender: FDA-Public Use
  Company Number: None

PATIENT
  Age: 47 Year
  Sex: Female
  Weight: 155 kg

DRUGS (1)
  1. CIPROFLOXACIN HCL [Suspect]
     Active Substance: CIPROFLOXACIN HYDROCHLORIDE
     Indication: KIDNEY INFECTION
     Dosage: 500MG 2X MOUTH/PILL
     Route: 048

REACTIONS (3)
  - Tendonitis [None]
  - Gait disturbance [None]
  - Hypoaesthesia [None]

NARRATIVE: CASE EVENT DATE: 20170809
